FAERS Safety Report 24587910 (Version 1)
Quarter: 2024Q4

REPORT INFORMATION
  Report Type: Spontaneous
  Country: KP (occurrence: KP)
  Receive Date: 20241107
  Receipt Date: 20241107
  Transmission Date: 20250115
  Serious: Yes (Hospitalization, Disabling, Other)
  Sender: RANBAXY
  Company Number: KP-SUN PHARMACEUTICAL INDUSTRIES LTD-2024R1-477646

PATIENT
  Age: 40 Year
  Sex: Male

DRUGS (4)
  1. LIDOCAINE [Suspect]
     Active Substance: LIDOCAINE
     Indication: Back pain
     Dosage: 1.3 MILLILITER
     Route: 065
  2. DEXAMETHASONE [Suspect]
     Active Substance: DEXAMETHASONE
     Indication: Back pain
     Dosage: 0.5 MILLIGRAM
     Route: 065
  3. TRIAMCINOLONE [Suspect]
     Active Substance: TRIAMCINOLONE
     Indication: Back pain
     Dosage: UNK
     Route: 065
  4. SODIUM CHLORIDE [Suspect]
     Active Substance: SODIUM CHLORIDE
     Indication: Back pain
     Dosage: UNK
     Route: 065

REACTIONS (3)
  - Cauda equina syndrome [Recovering/Resolving]
  - Spinal meningeal cyst [Unknown]
  - Spinal cord infarction [Unknown]
